FAERS Safety Report 19085608 (Version 1)
Quarter: 2021Q2

REPORT INFORMATION
  Report Type: Spontaneous
  Country: US (occurrence: US)
  Receive Date: 20210402
  Receipt Date: 20210402
  Transmission Date: 20210717
  Serious: Yes (Hospitalization, Other)
  Sender: FDA-Public Use
  Company Number: US-BRISTOL-MYERS SQUIBB COMPANY-BMS-2021-030479

PATIENT
  Age: 81 Year
  Sex: Female
  Weight: 59 kg

DRUGS (4)
  1. ELIQUIS [Suspect]
     Active Substance: APIXABAN
     Indication: PRODUCT USED FOR UNKNOWN INDICATION
     Dosage: UNK
     Route: 065
  2. TREPROSTINIL SODIUM [Suspect]
     Active Substance: TREPROSTINIL SODIUM
     Indication: PULMONARY ARTERIAL HYPERTENSION
     Dosage: 18?54 UG, QID
     Dates: start: 20210129
  3. DULCOLAX (BISACODYL) [Concomitant]
     Active Substance: BISACODYL
     Indication: CONSTIPATION
     Dosage: UNK
     Route: 065
     Dates: start: 20210226
  4. DULCOLAX (BISACODYL) [Concomitant]
     Active Substance: BISACODYL
     Dosage: 2 DOSAGE FORM, QD
     Route: 065
     Dates: start: 20210227

REACTIONS (14)
  - Pallor [Unknown]
  - Headache [Not Recovered/Not Resolved]
  - Fatigue [Unknown]
  - Haematochezia [Unknown]
  - Insomnia [Unknown]
  - Dyspnoea exertional [Not Recovered/Not Resolved]
  - Blood potassium decreased [None]
  - Blood magnesium decreased [None]
  - Nausea [Unknown]
  - Chills [Unknown]
  - Asthenia [None]
  - Flushing [Unknown]
  - Haemoptysis [Unknown]
  - Constipation [Unknown]

NARRATIVE: CASE EVENT DATE: 20210129
